FAERS Safety Report 7452300-9 (Version None)
Quarter: 2011Q2

REPORT INFORMATION
  Report Type: 
  Country: None (occurrence: None)
  Receive Date: 20110502
  Receipt Date: 20110426
  Transmission Date: 20111010
  Serious: Yes (Other)
  Sender: FDA-Public Use
  Company Number: US-PFIZER INC-2011041299

PATIENT
  Sex: Female
  Weight: 73.469 kg

DRUGS (7)
  1. TOVIAZ [Suspect]
     Indication: URINARY INCONTINENCE
     Dosage: 4 MG, DAILY
     Route: 048
     Dates: start: 20110130, end: 20110228
  2. CALCIUM [Concomitant]
     Dosage: UNK
  3. VITAMIN B [Concomitant]
     Dosage: UNK
  4. TOVIAZ [Suspect]
     Indication: STRESS URINARY INCONTINENCE
  5. TOVIAZ [Suspect]
     Indication: HYPERTONIC BLADDER
  6. VITAMIN D [Concomitant]
     Dosage: UNK
  7. XANAX [Concomitant]
     Indication: ANXIETY
     Dosage: 0.5 MG, UNK
     Dates: start: 20101014

REACTIONS (3)
  - SWELLING [None]
  - DRUG INEFFECTIVE [None]
  - WEIGHT INCREASED [None]
